FAERS Safety Report 7575394-9 (Version None)
Quarter: 2011Q2

REPORT INFORMATION
  Report Type: 
  Country: None (occurrence: None)
  Receive Date: 20110627
  Receipt Date: 20110620
  Transmission Date: 20111010
  Serious: Yes (Hospitalization)
  Sender: FDA-Public Use
  Company Number: PHHY2010US49494

PATIENT
  Sex: Female
  Weight: 38.1 kg

DRUGS (15)
  1. DIOVAN HCT [Concomitant]
  2. NORVASC [Concomitant]
  3. AMLODIPIN ^ORIFARM^ [Concomitant]
  4. ALBUTEROL SULFATE AUTOHALER [Concomitant]
  5. ZOCOR [Concomitant]
  6. SIMVASTATIN [Concomitant]
  7. EXJADE [Suspect]
     Indication: IRON METABOLISM DISORDER
     Dosage: 750 MG, DAILY
     Route: 048
     Dates: start: 20100616
  8. EXJADE [Suspect]
     Dosage: 500 MG, DAILY
     Route: 048
     Dates: start: 20100601
  9. SINGULAIR [Concomitant]
  10. LORAZEPAM [Concomitant]
  11. ADVAIR DISKUS 100/50 [Concomitant]
  12. NEXIUM [Concomitant]
  13. EVISTA [Concomitant]
  14. EXJADE [Suspect]
     Dosage: 500 MG, QOD
  15. LASIX [Concomitant]

REACTIONS (2)
  - DEHYDRATION [None]
  - OEDEMA PERIPHERAL [None]
